FAERS Safety Report 18019240 (Version 1)
Quarter: 2020Q3

REPORT INFORMATION
  Report Type: Spontaneous
  Country: US (occurrence: US)
  Receive Date: 20200713
  Receipt Date: 20200713
  Transmission Date: 20201103
  Serious: No
  Sender: FDA-Public Use
  Company Number: None

PATIENT
  Sex: Female

DRUGS (1)
  1. MODESA HAND SANITIZER 2 FL.OZ. 3 PK [Suspect]
     Active Substance: ALCOHOL

REACTIONS (3)
  - Peripheral swelling [None]
  - Recalled product [None]
  - Erythema [None]

NARRATIVE: CASE EVENT DATE: 20200701
